FAERS Safety Report 9218211 (Version 2)
Quarter: 2013Q3

REPORT INFORMATION
  Report Type: Spontaneous
  Country: JP (occurrence: JP)
  Receive Date: 20130408
  Receipt Date: 20130903
  Transmission Date: 20140515
  Serious: Yes (Death, Other)
  Sender: FDA-Public Use
  Company Number: JP-AMGEN-JPNSP2012084429

PATIENT
  Age: 63 Year
  Sex: Female
  Weight: 67 kg

DRUGS (23)
  1. VECTIBIX [Suspect]
     Indication: COLON CANCER
     Dosage: 402 MG, Q2WK
     Route: 041
     Dates: start: 20110701, end: 20110701
  2. VECTIBIX [Suspect]
     Dosage: 402 MG, Q3WK
     Route: 041
     Dates: start: 20110722, end: 20110902
  3. IRINOTECAN HYDROCHLORIDE [Suspect]
     Indication: COLON CANCER
     Dosage: UNK UNK, Q2WK
     Route: 041
     Dates: start: 20100427
  4. IRINOTECAN HYDROCHLORIDE [Suspect]
     Dosage: 160 MG, Q2WK
     Route: 041
     Dates: start: 20110520, end: 20110617
  5. IRINOTECAN HYDROCHLORIDE [Suspect]
     Dosage: 240 MG, Q2WK
     Route: 041
     Dates: start: 20110701, end: 20110701
  6. IRINOTECAN HYDROCHLORIDE [Suspect]
     Dosage: 240 MG, Q3WK
     Route: 041
     Dates: start: 20110722, end: 20110902
  7. 5 FU [Concomitant]
     Indication: COLON CANCER
     Dosage: UNK UNK, Q2WK
     Route: 042
     Dates: start: 20090714
  8. 5 FU [Concomitant]
     Dosage: UNK UNK, Q2WK
     Route: 042
     Dates: start: 20100112
  9. 5 FU [Concomitant]
     Dosage: UNK UNK, Q2WK
     Route: 042
     Dates: start: 20100427
  10. 5 FU [Concomitant]
     Dosage: 640 MG, Q2WK
     Route: 040
     Dates: start: 20110701, end: 20110701
  11. 5 FU [Concomitant]
     Dosage: 3840 MG, Q2WK
     Route: 041
     Dates: start: 20110701, end: 20110701
  12. 5 FU [Concomitant]
     Dosage: 640 MG, Q3WK
     Route: 040
     Dates: start: 20110722, end: 20110902
  13. 5 FU [Concomitant]
     Dosage: 3840 MG, Q3WK
     Route: 041
     Dates: start: 20110722, end: 20110902
  14. CALCIUM LEVOFOLINATE [Concomitant]
     Indication: COLON CANCER
     Dosage: UNK UNK, Q2WK
     Route: 041
     Dates: start: 20090714
  15. CALCIUM LEVOFOLINATE [Concomitant]
     Dosage: UNK UNK, Q2WK
     Route: 041
     Dates: start: 20100112
  16. CALCIUM LEVOFOLINATE [Concomitant]
     Dosage: UNK UNK, Q2WK
     Route: 041
     Dates: start: 20100427
  17. CALCIUM LEVOFOLINATE [Concomitant]
     Dosage: UNK UNK, Q2WK
     Route: 041
     Dates: start: 20110701, end: 20110701
  18. CALCIUM LEVOFOLINATE [Concomitant]
     Dosage: UNK UNK, Q3WK
     Route: 041
     Dates: start: 20110722, end: 20110902
  19. DIOVAN [Concomitant]
     Dosage: UNK
     Route: 048
  20. CALBLOCK [Concomitant]
     Dosage: UNK
     Route: 048
  21. DEXART [Concomitant]
     Dosage: UNK
     Route: 042
  22. GRANISETRON                        /01178102/ [Concomitant]
     Dosage: UNK
     Route: 042
  23. GAMOFA [Concomitant]
     Dosage: UNK
     Route: 042

REACTIONS (2)
  - Neutropenia [Recovered/Resolved]
  - Colon cancer [Fatal]
